FAERS Safety Report 4771757-5 (Version None)
Quarter: 2005Q3

REPORT INFORMATION
  Report Type: 
  Country: None (occurrence: None)
  Receive Date: 20050916
  Receipt Date: 20050629
  Transmission Date: 20060218
  Serious: Yes (Hospitalization)
  Sender: FDA-Public Use
  Company Number: US-MERCK-0507USA00202

PATIENT
  Age: 73 Year
  Sex: Female
  Weight: 114 kg

DRUGS (15)
  1. VIOXX [Suspect]
     Indication: ARTHRITIS
     Route: 048
     Dates: start: 20011118, end: 20040930
  2. AMBIEN [Concomitant]
     Route: 065
  3. ARIMIDEX [Concomitant]
     Route: 065
  4. CYCLOBENZAPRINE HYDROCHLORIDE [Concomitant]
     Route: 065
  5. FUROSEMIDE [Concomitant]
     Route: 065
  6. HYDROCODONE BITARTRATE + ACETAMINOPHEN [Concomitant]
     Route: 065
  7. METHYLPREDNISOLONE [Concomitant]
     Route: 065
  8. METRONIDAZOLE [Concomitant]
     Route: 065
  9. NULYTELY [Concomitant]
     Route: 065
  10. PERCOCET [Concomitant]
     Route: 065
  11. PIROXICAM [Concomitant]
     Route: 065
  12. POTASSIUM CHLORIDE [Concomitant]
     Route: 065
  13. PREVACID [Concomitant]
     Route: 065
  14. ROXICET [Concomitant]
     Route: 065
  15. WARFARIN [Concomitant]
     Route: 065

REACTIONS (32)
  - ACUTE CORONARY SYNDROME [None]
  - ANAEMIA [None]
  - ANXIETY [None]
  - APPENDIX DISORDER [None]
  - ARTHROPATHY [None]
  - BREAST CANCER [None]
  - BURSITIS [None]
  - DEHYDRATION [None]
  - DIVERTICULITIS [None]
  - DUODENAL ULCER [None]
  - EPISTAXIS [None]
  - FATIGUE [None]
  - GASTRIC HAEMORRHAGE [None]
  - GASTRIC ULCER HAEMORRHAGE [None]
  - GLUCOSE TOLERANCE IMPAIRED [None]
  - GRAVITATIONAL OEDEMA [None]
  - HAEMATOCHEZIA [None]
  - HEADACHE [None]
  - HYPERLIPIDAEMIA [None]
  - HYPOACUSIS [None]
  - INSOMNIA [None]
  - IRON DEFICIENCY ANAEMIA [None]
  - LYMPHADENOPATHY [None]
  - LYMPHOEDEMA [None]
  - MUSCLE SPASMS [None]
  - MYOCARDIAL INFARCTION [None]
  - NEUROPATHIC PAIN [None]
  - OSTEITIS DEFORMANS [None]
  - POLYMYALGIA [None]
  - PULMONARY EMBOLISM [None]
  - SKIN LESION [None]
  - UPPER RESPIRATORY TRACT INFECTION [None]
